FAERS Safety Report 7339047-4 (Version None)
Quarter: 2011Q1

REPORT INFORMATION
  Report Type: 
  Country: None (occurrence: None)
  Receive Date: 20110308
  Receipt Date: 20110223
  Transmission Date: 20110831
  Serious: Yes (Hospitalization)
  Sender: FDA-Public Use
  Company Number: FR-ELI_LILLY_AND_COMPANY-FR201102006773

PATIENT
  Sex: Female

DRUGS (6)
  1. TRIMEPRAZINE TARTRATE [Concomitant]
     Dosage: 50 GTT, DAILY (1/D)
     Route: 048
     Dates: start: 20080119
  2. CYMBALTA [Suspect]
     Indication: DEPRESSION
     Dosage: 60 MG, DAILY (1/D)
     Route: 048
     Dates: start: 20080121, end: 20080214
  3. MEPRONIZINE [Concomitant]
     Dosage: 1 D/F, UNK
     Route: 048
     Dates: start: 20080119
  4. ATARAX [Concomitant]
     Indication: ANXIETY
     Dosage: 100 MG, 2/D
     Route: 048
     Dates: start: 20080119
  5. VALIUM [Concomitant]
     Indication: ANXIETY
     Dosage: 10 MG, 3/D
     Route: 048
     Dates: start: 20080119
  6. STILNOX [Concomitant]
     Dosage: 1 D/F, DAILY (1/D)
     Route: 048
     Dates: start: 20080119

REACTIONS (4)
  - GAMMA-GLUTAMYLTRANSFERASE INCREASED [None]
  - ALANINE AMINOTRANSFERASE INCREASED [None]
  - BLOOD ALKALINE PHOSPHATASE INCREASED [None]
  - ASPARTATE AMINOTRANSFERASE INCREASED [None]
